FAERS Safety Report 5860367-4 (Version None)
Quarter: 2008Q3

REPORT INFORMATION
  Report Type: 
  Country: None (occurrence: None)
  Receive Date: 20080827
  Receipt Date: 20070802
  Transmission Date: 20090109
  Serious: No
  Sender: FDA-Public Use
  Company Number: US-ABBOTT-07P-163-0376466-00

PATIENT
  Sex: Male
  Weight: 90.8 kg

DRUGS (9)
  1. NIASPAN [Suspect]
     Indication: BLOOD TRIGLYCERIDES INCREASED
     Dosage: COATED
     Route: 048
     Dates: start: 20070601, end: 20070701
  2. NIASPAN [Suspect]
     Route: 048
     Dates: start: 20070701
  3. CARVEDILOL [Concomitant]
     Indication: DRUG USE FOR UNKNOWN INDICATION
     Route: 048
  4. FUROSEMIDE [Concomitant]
     Indication: CARDIAC FAILURE
     Route: 048
  5. WARFARIN SODIUM [Concomitant]
     Indication: CEREBROVASCULAR ACCIDENT PROPHYLAXIS
     Route: 048
  6. LISINOPRIL [Concomitant]
     Indication: DRUG USE FOR UNKNOWN INDICATION
     Route: 048
  7. GLIBENCLAMIDE [Concomitant]
     Indication: TYPE 2 DIABETES MELLITUS
     Route: 048
  8. PIOGLITAZONE [Concomitant]
     Indication: TYPE 2 DIABETES MELLITUS
     Route: 048
  9. ATORVASTATIN CALCIUM [Concomitant]
     Indication: BLOOD CHOLESTEROL INCREASED

REACTIONS (2)
  - DIZZINESS [None]
  - FLUSHING [None]
